FAERS Safety Report 9891996 (Version 2)
Quarter: 2014Q1

REPORT INFORMATION
  Report Type: Spontaneous
  Country: JP (occurrence: JP)
  Receive Date: 20140212
  Receipt Date: 20140212
  Transmission Date: 20141002
  Serious: Yes (Death)
  Sender: FDA-Public Use
  Company Number: JP-BAYER-2013-028395

PATIENT
  Age: 63 Year
  Sex: Male

DRUGS (2)
  1. NEXAVAR [Suspect]
     Indication: HEPATOCELLULAR CARCINOMA
     Dosage: 400 MG, BID
     Route: 048
     Dates: start: 20121220, end: 20130304
  2. NEXAVAR [Suspect]
     Indication: HEPATOCELLULAR CARCINOMA
     Dosage: 400 MG, QOD
     Route: 048
     Dates: start: 20130304, end: 20130927

REACTIONS (9)
  - Hypertension [Not Recovered/Not Resolved]
  - Malaise [Recovering/Resolving]
  - Abdominal pain upper [Recovered/Resolved]
  - Dysgeusia [Recovering/Resolving]
  - Palmar-plantar erythrodysaesthesia syndrome [Recovering/Resolving]
  - Rash [Recovering/Resolving]
  - Decreased appetite [Not Recovered/Not Resolved]
  - Dysphonia [Unknown]
  - Hepatocellular carcinoma [Fatal]
